FAERS Safety Report 12681881 (Version 1)
Quarter: 2016Q3

REPORT INFORMATION
  Report Type: Spontaneous
  Country: DE (occurrence: DE)
  Receive Date: 20160824
  Receipt Date: 20160824
  Transmission Date: 20161109
  Serious: Yes (Other)
  Sender: FDA-Public Use
  Company Number: DE-EMD SERONO-8102430

PATIENT
  Age: 46 Year
  Sex: Female

DRUGS (1)
  1. REBIF [Suspect]
     Active Substance: INTERFERON BETA-1A
     Indication: PRODUCT USED FOR UNKNOWN INDICATION
     Dosage: PRE-FILLED SYRINGES
     Route: 058
     Dates: start: 2008

REACTIONS (6)
  - Dizziness [Unknown]
  - Malaise [Unknown]
  - Blood pressure increased [Unknown]
  - Ovarian disorder [Not Recovered/Not Resolved]
  - Headache [Unknown]
  - Uterine disorder [Not Recovered/Not Resolved]
